FAERS Safety Report 8327973-9 (Version None)
Quarter: 2012Q2

REPORT INFORMATION
  Report Type: 
  Country: None (occurrence: None)
  Receive Date: 20120430
  Receipt Date: 20120418
  Transmission Date: 20120825
  Serious: Yes (Other)
  Sender: FDA-Public Use
  Company Number: GER/UKI/12/0023989

PATIENT
  Age: 20 Year
  Sex: Female

DRUGS (4)
  1. CLOZAPINE [Suspect]
     Indication: PRODUCT USED FOR UNKNOWN INDICATION
     Dosage: 2 12.5 MG, ORAL
     Route: 048
     Dates: start: 20120416
  2. CLOZAPINE [Suspect]
     Indication: PRODUCT USED FOR UNKNOWN INDICATION
     Dosage: 2 12.5 MG, ORAL
     Route: 048
     Dates: start: 20120405, end: 20120407
  3. QUETIAPINE FUMARATE [Suspect]
     Indication: PRODUCT USED FOR UNKNOWN INDICATION
  4. SERTRALINE HYDROCHLORIDE [Concomitant]

REACTIONS (4)
  - TACHYCARDIA [None]
  - DRUG INTERACTION [None]
  - HYPOTENSION [None]
  - DIZZINESS [None]
